FAERS Safety Report 9215853 (Version 1)
Quarter: 2013Q2

REPORT INFORMATION
  Report Type: Spontaneous
  Country: US (occurrence: US)
  Receive Date: 20130408
  Receipt Date: 20130408
  Transmission Date: 20140414
  Serious: No
  Sender: FDA-Public Use
  Company Number: US-BIOGENIDEC-2013BI030119

PATIENT
  Sex: Female

DRUGS (1)
  1. TYSABRI [Suspect]
     Indication: MULTIPLE SCLEROSIS
     Route: 042
     Dates: start: 20110421

REACTIONS (6)
  - Hypoaesthesia [Unknown]
  - Balance disorder [Unknown]
  - Pain in extremity [Unknown]
  - Urine output decreased [Unknown]
  - Pollakiuria [Unknown]
  - Urine odour abnormal [Unknown]
